FAERS Safety Report 25776359 (Version 1)
Quarter: 2025Q3

REPORT INFORMATION
  Report Type: Spontaneous
  Country: US (occurrence: US)
  Receive Date: 20250909
  Receipt Date: 20250909
  Transmission Date: 20251020
  Serious: No
  Sender: DOMPE FARMACEUTICI
  Company Number: US-FARMAPROD-202502-0598

PATIENT
  Sex: Female

DRUGS (19)
  1. OXERVATE [Suspect]
     Active Substance: CENEGERMIN-BKBJ
     Indication: Neurotrophic keratopathy
     Route: 047
     Dates: start: 20250211
  2. OXERVATE [Suspect]
     Active Substance: CENEGERMIN-BKBJ
  3. GAMUNEX-C [Concomitant]
     Active Substance: HUMAN IMMUNOGLOBULIN G
  4. CLONAZEPAM [Concomitant]
     Active Substance: CLONAZEPAM
  5. MAGNESIUM [Concomitant]
     Active Substance: MAGNESIUM
  6. AMITRIPTYLINE HYDROCHLORIDE [Concomitant]
     Active Substance: AMITRIPTYLINE HYDROCHLORIDE
  7. MOXIFLOXACIN [Concomitant]
     Active Substance: MOXIFLOXACIN
  8. VITAMINS [Concomitant]
     Active Substance: VITAMINS
  9. FISH OIL [Concomitant]
     Active Substance: FISH OIL
  10. VITAMIN D-400 [Concomitant]
  11. CALCIUM [Concomitant]
     Active Substance: CALCIUM
  12. ZYRTEC [Concomitant]
     Active Substance: CETIRIZINE HYDROCHLORIDE
  13. ALLEGRA ALLERGY [Concomitant]
     Active Substance: FEXOFENADINE HYDROCHLORIDE
  14. MELOXICAM [Concomitant]
     Active Substance: MELOXICAM
  15. SINGULAIR [Concomitant]
     Active Substance: MONTELUKAST SODIUM
  16. PROGESTERONE [Concomitant]
     Active Substance: PROGESTERONE
  17. LEVOTHYROXINE SODIUM [Concomitant]
     Active Substance: LEVOTHYROXINE SODIUM
  18. ESTRADIOL [Concomitant]
     Active Substance: ESTRADIOL
  19. BISOPROLOL FUMARATE [Concomitant]
     Active Substance: BISOPROLOL FUMARATE

REACTIONS (3)
  - Eye pain [Recovering/Resolving]
  - Corneal abrasion [Recovering/Resolving]
  - Eye ulcer [Unknown]
